FAERS Safety Report 12077075 (Version 10)
Quarter: 2017Q2

REPORT INFORMATION
  Report Type: Report from Study
  Country: CA (occurrence: CA)
  Receive Date: 20160215
  Receipt Date: 20170411
  Transmission Date: 20170829
  Serious: Yes (Death, Hospitalization, Other)
  Sender: FDA-Public Use
  Company Number: PHHY2016CA018273

PATIENT
  Age: 66 Year
  Sex: Male

DRUGS (3)
  1. HYDROMORPHONE [Concomitant]
     Active Substance: HYDROMORPHONE
     Indication: PRODUCT USED FOR UNKNOWN INDICATION
     Dosage: UNK (VIA PAIN PUMP)
     Route: 050
     Dates: start: 2016
  2. SANDOSTATIN LAR DEPOT [Suspect]
     Active Substance: OCTREOTIDE ACETATE
     Indication: CARCINOID TUMOUR
     Dosage: 30 MG, QMO/ EVERY 4 WEEKS
     Route: 030
     Dates: start: 20151028, end: 20170317
  3. SANDOSTATIN [Suspect]
     Active Substance: OCTREOTIDE ACETATE
     Indication: CARCINOID TUMOUR
     Dosage: 100 UG, ONCE/SINGLE/ TEST DOSE
     Route: 058
     Dates: start: 20151028, end: 20151028

REACTIONS (10)
  - Urinary tract infection [Recovered/Resolved]
  - Malaise [Unknown]
  - Nausea [Unknown]
  - Death [Fatal]
  - Abdominal pain [Recovering/Resolving]
  - Flushing [Unknown]
  - Asthenia [Unknown]
  - Intestinal perforation [Unknown]
  - Malignant neoplasm progression [Unknown]
  - Blood pressure diastolic decreased [Unknown]

NARRATIVE: CASE EVENT DATE: 201610
